FAERS Safety Report 19855638 (Version 1)
Quarter: 2021Q3

REPORT INFORMATION
  Report Type: Spontaneous
  Country: US (occurrence: US)
  Receive Date: 20210920
  Receipt Date: 20210920
  Transmission Date: 20211014
  Serious: Yes (Hospitalization)
  Sender: FDA-Public Use
  Company Number: None

PATIENT
  Sex: Male

DRUGS (17)
  1. ISORB DIN [Concomitant]
  2. VANCOMYCIN [Concomitant]
     Active Substance: VANCOMYCIN
  3. LEVOTHYROXIN [Concomitant]
     Active Substance: LEVOTHYROXINE
  4. TAMSULOSIN [Concomitant]
     Active Substance: TAMSULOSIN
  5. AMLODIPINE [Concomitant]
     Active Substance: AMLODIPINE BESYLATE
  6. SODIUM BICAR [Concomitant]
  7. FAMOTIDINE. [Concomitant]
     Active Substance: FAMOTIDINE
  8. FERROUS SULF [Concomitant]
     Active Substance: FERROUS SULFATE
  9. PREDNISONE. [Concomitant]
     Active Substance: PREDNISONE
  10. OCTREOTIDE. [Suspect]
     Active Substance: OCTREOTIDE
     Indication: PRODUCT USED FOR UNKNOWN INDICATION
     Route: 058
     Dates: start: 20210730
  11. HYDRALAZINE [Concomitant]
     Active Substance: HYDRALAZINE HYDROCHLORIDE
  12. MIRTAZAPINE. [Concomitant]
     Active Substance: MIRTAZAPINE
  13. CHOLESTYRAM [Concomitant]
     Active Substance: CHOLESTYRAMINE
  14. FEROSUL [Concomitant]
     Active Substance: FERROUS SULFATE
  15. ZINC SULFATE. [Concomitant]
     Active Substance: ZINC SULFATE
  16. LOPERAMIDE [Concomitant]
     Active Substance: LOPERAMIDE
  17. VITAMIN D [Concomitant]
     Active Substance: VITAMIN D NOS

REACTIONS (2)
  - Pneumonia [None]
  - Therapy interrupted [None]
